FAERS Safety Report 20869041 (Version 2)
Quarter: 2023Q1

REPORT INFORMATION
  Report Type: Spontaneous
  Country: US (occurrence: US)
  Receive Date: 20220524
  Receipt Date: 20230222
  Transmission Date: 20230418
  Serious: Yes (Other)
  Sender: FDA-Public Use
  Company Number: US-GILEAD-2022-0582682

PATIENT
  Age: 55 Year
  Sex: Male
  Weight: 88.4 kg

DRUGS (29)
  1. VIREAD [Suspect]
     Active Substance: TENOFOVIR DISOPROXIL FUMARATE
     Indication: HIV infection
     Dosage: UNK
     Route: 048
     Dates: start: 2005
  2. VIREAD [Suspect]
     Active Substance: TENOFOVIR DISOPROXIL FUMARATE
     Dosage: UNK
     Route: 048
     Dates: start: 2001, end: 2006
  3. ATRIPLA [Suspect]
     Active Substance: EFAVIRENZ\EMTRICITABINE\TENOFOVIR DISOPROXIL FUMARATE
     Indication: HIV infection
     Dosage: UNK
     Route: 048
     Dates: start: 2005
  4. ATRIPLA [Suspect]
     Active Substance: EFAVIRENZ\EMTRICITABINE\TENOFOVIR DISOPROXIL FUMARATE
     Dosage: UNK
     Route: 048
     Dates: start: 2006, end: 2015
  5. STRIBILD [Suspect]
     Active Substance: COBICISTAT\ELVITEGRAVIR\EMTRICITABINE\TENOFOVIR DISOPROXIL FUMARATE
     Indication: HIV infection
     Dosage: UNK
     Route: 048
     Dates: start: 2005
  6. STRIBILD [Suspect]
     Active Substance: COBICISTAT\ELVITEGRAVIR\EMTRICITABINE\TENOFOVIR DISOPROXIL FUMARATE
     Dosage: UNK
     Route: 048
     Dates: start: 201508, end: 201703
  7. VITAMIN C [Concomitant]
     Active Substance: ASCORBIC ACID
     Dosage: UNK
     Dates: start: 2017
  8. CRANBERRY JUICE [Concomitant]
     Active Substance: CRANBERRY JUICE
     Dosage: UNK
     Dates: start: 2017
  9. COMBIVIR [Concomitant]
     Active Substance: LAMIVUDINE\ZIDOVUDINE
  10. CRIXIVAN [Concomitant]
     Active Substance: INDINAVIR SULFATE
  11. DESCOVY [Concomitant]
     Active Substance: EMTRICITABINE\TENOFOVIR ALAFENAMIDE FUMARATE
     Indication: HIV infection
     Dosage: UNK
     Dates: start: 201703, end: 202106
  12. EPIVIR [Concomitant]
     Active Substance: LAMIVUDINE
  13. EPZICOM [Concomitant]
     Active Substance: ABACAVIR SULFATE\LAMIVUDINE
  14. INVIRASE [Concomitant]
     Active Substance: SAQUINAVIR MESYLATE
  15. ISENTRESS [Concomitant]
     Active Substance: RALTEGRAVIR POTASSIUM
  16. KALETRA [Concomitant]
     Active Substance: LOPINAVIR\RITONAVIR
  17. NORVIR [Concomitant]
     Active Substance: RITONAVIR
  18. RESCRIPTOR [Concomitant]
     Active Substance: DELAVIRDINE MESYLATE
  19. RETROVIR [Concomitant]
     Active Substance: ZIDOVUDINE
  20. REYATAZ [Concomitant]
     Active Substance: ATAZANAVIR SULFATE
  21. SUSTIVA [Concomitant]
     Active Substance: EFAVIRENZ
  22. TIVICAY [Concomitant]
     Active Substance: DOLUTEGRAVIR SODIUM
     Indication: HIV infection
     Dosage: UNK
     Dates: start: 201703, end: 201712
  23. TRIZIVIR [Concomitant]
     Active Substance: ABACAVIR SULFATE\LAMIVUDINE\ZIDOVUDINE
  24. VIDEX [Concomitant]
     Active Substance: DIDANOSINE
  25. VIRACEPT [Concomitant]
     Active Substance: NELFINAVIR MESYLATE
  26. VIRAMUNE [Concomitant]
     Active Substance: NEVIRAPINE
  27. ZIAGEN [Concomitant]
     Active Substance: ABACAVIR SULFATE
  28. ZERIT [Concomitant]
     Active Substance: STAVUDINE
  29. CABENUVA [Concomitant]
     Active Substance: CABOTEGRAVIR\RILPIVIRINE
     Indication: HIV infection
     Dosage: UNK
     Dates: start: 2021

REACTIONS (7)
  - Chronic kidney disease [Recovered/Resolved]
  - Bone demineralisation [Unknown]
  - Osteopenia [Not Recovered/Not Resolved]
  - Pain [Not Recovered/Not Resolved]
  - Emotional distress [Not Recovered/Not Resolved]
  - Anxiety [Not Recovered/Not Resolved]
  - Anhedonia [Not Recovered/Not Resolved]

NARRATIVE: CASE EVENT DATE: 20161001
